FAERS Safety Report 6220103-9 (Version None)
Quarter: 2009Q2

REPORT INFORMATION
  Report Type: 
  Country: None (occurrence: None)
  Receive Date: 20090609
  Receipt Date: 20090527
  Transmission Date: 20091009
  Serious: Yes (Hospitalization)
  Sender: FDA-Public Use
  Company Number: CO-ELI_LILLY_AND_COMPANY-CO200905005808

PATIENT
  Age: 57 Year
  Sex: Female
  Weight: 119 kg

DRUGS (11)
  1. BYETTA [Suspect]
     Indication: TYPE 2 DIABETES MELLITUS
     Dosage: 5 UG, 2/D
     Route: 058
     Dates: start: 20081202
  2. BYETTA [Suspect]
     Dosage: 10 UG, 2/D
     Route: 058
     Dates: start: 20090430
  3. GLIBENCLAMIDE [Concomitant]
     Dosage: UNK, UNKNOWN
     Route: 065
  4. VALSARTAN [Concomitant]
     Dosage: UNK, UNKNOWN
     Route: 065
  5. CLONIDINE HCL [Concomitant]
     Dosage: UNK, UNKNOWN
     Route: 065
  6. VERAPAMIL [Concomitant]
     Dosage: UNK, UNKNOWN
     Route: 065
  7. PRAVASTATIN [Concomitant]
     Dosage: UNK, UNKNOWN
     Route: 065
  8. OXYGEN [Concomitant]
     Dosage: UNK, OTHER
     Route: 065
  9. FUROSEMIDE [Concomitant]
     Dosage: UNK, UNKNOWN
     Route: 065
  10. LEVOTHYROXINE SODIUM [Concomitant]
     Dosage: UNK, UNKNOWN
     Route: 065
  11. METOPROLOL SUCCINATE [Concomitant]
     Dosage: UNK, UNKNOWN
     Route: 065

REACTIONS (11)
  - ABDOMINAL DISTENSION [None]
  - ABDOMINAL PAIN [None]
  - ASTHENIA [None]
  - BLOOD CHOLESTEROL ABNORMAL [None]
  - BLOOD GLUCOSE INCREASED [None]
  - DIZZINESS [None]
  - HYPERTENSION [None]
  - HYPOXIA [None]
  - PALLOR [None]
  - RHINORRHOEA [None]
  - SNEEZING [None]
